FAERS Safety Report 21681273 (Version 2)
Quarter: 2022Q4

REPORT INFORMATION
  Report Type: Report from Study
  Country: US (occurrence: US)
  Receive Date: 20221205
  Receipt Date: 20221205
  Transmission Date: 20230113
  Serious: No
  Sender: FDA-Public Use
  Company Number: US-ABBVIE-4215767

PATIENT
  Sex: Male

DRUGS (1)
  1. RINVOQ [Suspect]
     Active Substance: UPADACITINIB
     Indication: Psoriatic arthropathy
     Dosage: DRUG START DATE: 28 OCT 2022?15 MG
     Route: 048
     Dates: start: 20221028

REACTIONS (5)
  - Constipation [Not Recovered/Not Resolved]
  - Acne [Unknown]
  - Dermatitis atopic [Unknown]
  - Productive cough [Recovering/Resolving]
  - Sinusitis [Recovering/Resolving]

NARRATIVE: CASE EVENT DATE: 20220101
